FAERS Safety Report 17220589 (Version 1)
Quarter: 2019Q4

REPORT INFORMATION
  Report Type: Spontaneous
  Country: US (occurrence: US)
  Receive Date: 20191231
  Receipt Date: 20191231
  Transmission Date: 20200122
  Serious: Yes (Other)
  Sender: FDA-Public Use
  Company Number: NVSC2019US082384

PATIENT
  Age: 75 Year
  Sex: Male

DRUGS (1)
  1. TRIESENCE [Suspect]
     Active Substance: TRIAMCINOLONE ACETONIDE
     Indication: MACULAR FIBROSIS
     Dosage: 4 MG
     Route: 031

REACTIONS (1)
  - Rhegmatogenous retinal detachment [Recovered/Resolved]
